FAERS Safety Report 9463795 (Version 3)
Quarter: 2013Q3

REPORT INFORMATION
  Report Type: Spontaneous
  Country: US (occurrence: US)
  Receive Date: 20130819
  Receipt Date: 20130925
  Transmission Date: 20140515
  Serious: Yes (Other)
  Sender: FDA-Public Use
  Company Number: US-ASTELLAS-2013US006701

PATIENT
  Age: 65 Year
  Sex: Male

DRUGS (7)
  1. XTANDI [Suspect]
     Indication: PROSTATE CANCER
     Dosage: 160 MG, UID/QD
     Route: 048
  2. XTANDI [Suspect]
     Dosage: 80 MG, UID/QD
     Route: 048
     Dates: start: 20130619
  3. LIPITOR [Concomitant]
     Indication: PRODUCT USED FOR UNKNOWN INDICATION
     Dosage: 40 MG, UID/QD
     Route: 048
  4. ZOLADEX                            /00732101/ [Concomitant]
     Indication: PRODUCT USED FOR UNKNOWN INDICATION
     Dosage: 10.8 MG, UID/QD
     Route: 048
  5. TAMSULOSIN [Concomitant]
     Indication: PRODUCT USED FOR UNKNOWN INDICATION
     Dosage: 2 DF, UID/QD
     Route: 048
  6. NEXIUM                             /01479302/ [Concomitant]
     Indication: PRODUCT USED FOR UNKNOWN INDICATION
     Dosage: 40 MG, UID/QD
     Route: 048
  7. HORMONAL THERAPY [Concomitant]
     Indication: PROSTATE CANCER
     Dosage: UNK
     Route: 065

REACTIONS (6)
  - Local swelling [Recovered/Resolved]
  - Urinary incontinence [Unknown]
  - Haematuria [Unknown]
  - Hypercholesterolaemia [Unknown]
  - Bone disorder [Unknown]
  - Urinary retention [Unknown]
